FAERS Safety Report 24161874 (Version 1)
Quarter: 2024Q3

REPORT INFORMATION
  Report Type: Spontaneous
  Country: US (occurrence: US)
  Receive Date: 20240801
  Receipt Date: 20240801
  Transmission Date: 20241017
  Serious: No
  Sender: JOHNSON AND JOHNSON
  Company Number: US-JNJFOC-20240781908

PATIENT
  Sex: Male

DRUGS (1)
  1. XARELTO [Suspect]
     Active Substance: RIVAROXABAN
     Indication: Factor V Leiden mutation
     Route: 048

REACTIONS (4)
  - Bowel movement irregularity [Recovered/Resolved]
  - Accident [Unknown]
  - Off label use [Unknown]
  - Inadequate diet [Unknown]
